FAERS Safety Report 6431517-6 (Version None)
Quarter: 2009Q4

REPORT INFORMATION
  Report Type: 
  Country: None (occurrence: None)
  Receive Date: 20091106
  Receipt Date: 20091101
  Transmission Date: 20100525
  Serious: Yes (Other)
  Sender: FDA-Public Use
  Company Number: DE-AMGEN-UK355385

PATIENT
  Sex: Male

DRUGS (7)
  1. NPLATE [Suspect]
     Indication: IDIOPATHIC THROMBOCYTOPENIC PURPURA
     Route: 065
     Dates: start: 20090506
  2. PHENYTOIN [Suspect]
     Route: 065
  3. DECORTIN [Concomitant]
     Route: 065
     Dates: start: 20090506
  4. IMMUNE GLOBULIN (HUMAN) [Concomitant]
     Route: 065
     Dates: start: 20090506
  5. EPOETIN ALFA [Concomitant]
     Route: 065
     Dates: start: 20090805
  6. UNSPECIFIED MEDICATION [Concomitant]
     Route: 065
     Dates: start: 20090805
  7. UNSPECIFIED MEDICATION [Concomitant]
     Route: 065
     Dates: start: 20090923

REACTIONS (4)
  - DRUG EFFECT DECREASED [None]
  - LIMB DISCOMFORT [None]
  - PLATELET COUNT ABNORMAL [None]
  - SLEEP DISORDER [None]
